FAERS Safety Report 17045226 (Version 3)
Quarter: 2019Q4

REPORT INFORMATION
  Report Type: Spontaneous
  Country: JP (occurrence: JP)
  Receive Date: 20191118
  Receipt Date: 20191223
  Transmission Date: 20200122
  Serious: Yes (Hospitalization, Other)
  Sender: FDA-Public Use
  Company Number: JP-PFIZER INC-2019496417

PATIENT
  Age: 65 Year
  Sex: Female

DRUGS (5)
  1. AMLODIPINE BESILATE [Suspect]
     Active Substance: AMLODIPINE BESYLATE
     Dosage: 10 MG, DAILY
     Dates: end: 20190823
  2. LYRICA [Suspect]
     Active Substance: PREGABALIN
     Indication: PAIN IN EXTREMITY
     Dosage: 300 MG, 2X/DAY
     Dates: end: 20191114
  3. CANDESARTAN. [Suspect]
     Active Substance: CANDESARTAN
     Dosage: 8 MG, UNK
     Dates: end: 20190823
  4. ARTIST [Suspect]
     Active Substance: CARVEDILOL
     Dosage: 10 MG, UNK
     Dates: end: 20190823
  5. LOXONIN [Suspect]
     Active Substance: LOXOPROFEN SODIUM
     Dosage: 180 MG, 3X/DAY

REACTIONS (8)
  - Product use issue [Unknown]
  - Drug level increased [Unknown]
  - Off label use [Unknown]
  - Blood creatinine increased [Unknown]
  - Influenza [Recovered/Resolved]
  - Blood pressure decreased [Unknown]
  - Altered state of consciousness [Recovered/Resolved]
  - Acute kidney injury [Recovered/Resolved]

NARRATIVE: CASE EVENT DATE: 20190823
